FAERS Safety Report 7963829-9 (Version None)
Quarter: 2011Q4

REPORT INFORMATION
  Report Type: 
  Country: None (occurrence: None)
  Receive Date: 20111122
  Receipt Date: 20110727
  Transmission Date: 20120403
  Serious: No
  Sender: FDA-Public Use
  Company Number: PHHY2011US56276

PATIENT
  Age: 55 Year
  Sex: Female

DRUGS (11)
  1. TOPIRAMATE [Concomitant]
  2. DIGOXIN [Concomitant]
  3. ATENOLOL [Concomitant]
  4. GILENYA [Suspect]
     Indication: MULTIPLE SCLEROSIS
     Dosage: 0.5 MG, QD, ORAL
     Route: 048
     Dates: start: 20110601
  5. VENLAFAXINE [Concomitant]
  6. VERAPAMIL [Concomitant]
  7. PROMETHAZINE [Concomitant]
  8. TORSEMIDE [Concomitant]
  9. POTASSIUM ACETATE [Concomitant]
  10. ZONISAMIDE [Concomitant]
  11. ALPRAZOLAM [Concomitant]

REACTIONS (3)
  - HYPERSOMNIA [None]
  - OEDEMA [None]
  - FATIGUE [None]
